FAERS Safety Report 4271367-2 (Version None)
Quarter: 2004Q1

REPORT INFORMATION
  Report Type: 
  Country: None (occurrence: None)
  Receive Date: 20040114
  Receipt Date: 20040114
  Transmission Date: 20041129
  Serious: Yes (Other)
  Sender: FDA-Public Use
  Company Number: None

PATIENT
  Sex: Male
  Weight: 78.0187 kg

DRUGS (2)
  1. CYPHER STENTS -2- CORDIS CORP -J+J- [Suspect]
     Dosage: 3.05 18MM DISTAL STE INTRACORONARY
     Route: 022
     Dates: start: 20030929, end: 20040113
  2. SIROLIMUS ON STENT WYETH [Suspect]
     Dosage: 3.05 23MM PROXIMAL S INTRACORONARY
     Route: 022
     Dates: start: 20030929, end: 20040113

REACTIONS (2)
  - HYPERSENSITIVITY [None]
  - MEDICAL DEVICE IMPLANTATION [None]
